FAERS Safety Report 5753971-5 (Version None)
Quarter: 2008Q2

REPORT INFORMATION
  Report Type: 
  Country: None (occurrence: None)
  Receive Date: 20080530
  Receipt Date: 20080527
  Transmission Date: 20081010
  Serious: Yes (Life-Threatening, Hospitalization)
  Sender: FDA-Public Use
  Company Number: FR-JNJFOC-20080505160

PATIENT
  Sex: Female
  Weight: 45 kg

DRUGS (10)
  1. LEUSTATIN [Suspect]
     Indication: SKIN DISORDER
     Route: 042
     Dates: start: 20070730, end: 20070803
  2. LEUSTATIN [Suspect]
     Route: 058
  3. MINIRIN [Concomitant]
     Indication: DIABETES INSIPIDUS
  4. URSOLVAN [Concomitant]
     Indication: DRUG USE FOR UNKNOWN INDICATION
  5. ZOPHREN [Concomitant]
     Indication: DRUG USE FOR UNKNOWN INDICATION
  6. SKENAN [Concomitant]
     Indication: DRUG USE FOR UNKNOWN INDICATION
  7. LEXOMIL [Concomitant]
     Indication: DRUG USE FOR UNKNOWN INDICATION
  8. DIFFU K [Concomitant]
     Indication: DRUG USE FOR UNKNOWN INDICATION
  9. BACTRIM [Concomitant]
     Indication: DRUG USE FOR UNKNOWN INDICATION
  10. ZELITREX [Concomitant]
     Indication: DRUG USE FOR UNKNOWN INDICATION

REACTIONS (7)
  - CANDIDIASIS [None]
  - HISTIOCYTOSIS HAEMATOPHAGIC [None]
  - INFECTION [None]
  - PANCYTOPENIA [None]
  - PSEUDOMONAS INFECTION [None]
  - STAPHYLOCOCCAL SEPSIS [None]
  - URINARY TRACT INFECTION [None]
